FAERS Safety Report 4450213-8 (Version None)
Quarter: 2004Q3

REPORT INFORMATION
  Report Type: 
  Country: None (occurrence: None)
  Receive Date: 20040914
  Receipt Date: 20040827
  Transmission Date: 20050211
  Serious: Yes (Hospitalization)
  Sender: FDA-Public Use
  Company Number: DSA_24876_2004

PATIENT
  Age: 64 Year
  Sex: Female

DRUGS (3)
  1. TEVETEN [Suspect]
     Indication: ILL-DEFINED DISORDER
     Dosage: 400 MG Q DAY PO
     Route: 048
  2. TEVETEN [Suspect]
     Indication: ILL-DEFINED DISORDER
     Dosage: 300 MG Q DAY PO
     Route: 048
  3. TEVETEN [Suspect]
     Indication: ILL-DEFINED DISORDER
     Dosage: 300 MG Q DAY PO
     Route: 048

REACTIONS (4)
  - CIRCULATORY COLLAPSE [None]
  - HYPOTENSION [None]
  - INJURY [None]
  - LOSS OF CONSCIOUSNESS [None]
